FAERS Safety Report 4620552-6 (Version None)
Quarter: 2005Q1

REPORT INFORMATION
  Report Type: 
  Country: None (occurrence: None)
  Receive Date: 20050324
  Receipt Date: 20050317
  Transmission Date: 20050727
  Serious: Yes (Hospitalization)
  Sender: FDA-Public Use
  Company Number: 213194

PATIENT
  Age: 42 Year
  Sex: Female

DRUGS (7)
  1. XOLAIR [Suspect]
     Indication: ASTHMA
     Dosage: 375 Q2W, SUBCUTANEOUS
     Route: 058
     Dates: start: 20050201, end: 20050301
  2. PREVACID [Concomitant]
  3. FORDIL (FORMOTEROL FUMARATE) [Concomitant]
  4. BUDESONIDE (BUDENOSIDE) [Concomitant]
  5. ZYRTEC [Concomitant]
  6. SINGULAIR [Concomitant]
  7. ALBUTEROL (ALBUTEROL, ALBUTEROL SULFATE) [Concomitant]

REACTIONS (1)
  - PSEUDOMONAS INFECTION [None]
